FAERS Safety Report 22131040 (Version 1)
Quarter: 2023Q1

REPORT INFORMATION
  Report Type: Spontaneous
  Country: SE (occurrence: SE)
  Receive Date: 20230323
  Receipt Date: 20230323
  Transmission Date: 20230418
  Serious: Yes (Death)
  Sender: FDA-Public Use
  Company Number: None

PATIENT
  Age: 85 Year
  Sex: Female

DRUGS (20)
  1. KEYTRUDA [Suspect]
     Active Substance: PEMBROLIZUMAB
     Indication: Colon cancer
     Dosage: 25 MG/ML 200MG X 1, FIRST DOSE
     Route: 042
     Dates: start: 20230123, end: 20230123
  2. POLYETHYLENE GLYCOL 3350\POTASSIUM CHLORIDE\SODIUM BICARBONATE\SODIUM [Concomitant]
     Active Substance: POLYETHYLENE GLYCOL 3350\POTASSIUM CHLORIDE\SODIUM BICARBONATE\SODIUM CHLORIDE
     Dosage: 1VB
     Route: 048
     Dates: start: 20211101, end: 20230306
  3. UREA [Concomitant]
     Active Substance: UREA
     Dosage: 5 % 1VB
     Route: 003
     Dates: start: 20230117, end: 20230306
  4. ALBUTEROL SULFATE [Concomitant]
     Active Substance: ALBUTEROL SULFATE
     Dosage: 100 MICROGRAM/DOSE 1VB
     Dates: start: 20180129, end: 20230306
  5. LEVOTHYROXINE SODIUM [Concomitant]
     Active Substance: LEVOTHYROXINE SODIUM
     Dosage: 100 MICROGRAM 1X1
     Route: 048
     Dates: start: 20140616, end: 20230306
  6. XGEVA [Concomitant]
     Active Substance: DENOSUMAB
     Dosage: 120MG EVERY 4 WEEKS
     Dates: start: 20211025, end: 20230306
  7. LETROZOLE [Concomitant]
     Active Substance: LETROZOLE
     Dosage: 2,5 MG 1X1
     Route: 048
     Dates: start: 20230303, end: 20230306
  8. ZOLPIDEM [Concomitant]
     Active Substance: ZOLPIDEM TARTRATE
     Dosage: 10 MG 1TN
     Route: 048
     Dates: start: 20230306, end: 20230306
  9. AMLODIPINE BESYLATE [Concomitant]
     Active Substance: AMLODIPINE BESYLATE
     Dosage: 5 MG 1X1
     Route: 048
     Dates: start: 20230228, end: 20230306
  10. ASPIRIN [Concomitant]
     Active Substance: ASPIRIN
     Dosage: 75 MG 1X1
     Route: 048
     Dates: start: 20230303, end: 20230306
  11. CARBOMER [Concomitant]
     Active Substance: CARBOMER
     Dosage: 2 MG/G 1VB
     Route: 047
     Dates: start: 20230117, end: 20230306
  12. ATORVASTATIN XIROMED [Concomitant]
     Dosage: 80 MG 1X1
     Route: 048
     Dates: start: 20230301, end: 20230306
  13. OMEPRAZOL TEVA [OMEPRAZOLE] [Concomitant]
     Dosage: 20 MG 1X1
     Route: 048
     Dates: start: 20230303, end: 20230306
  14. TRELEGY ELLIPTA [Concomitant]
     Active Substance: FLUTICASONE FUROATE\UMECLIDINIUM BROMIDE\VILANTEROL TRIFENATATE
     Dosage: 92 MICROGRAM/55 MICROGRAM/22 MICROGRAM 1X1
     Dates: start: 20180320, end: 20230306
  15. RAMIPRIL [Concomitant]
     Active Substance: RAMIPRIL
     Dosage: 5 MG 1X1
     Route: 048
     Dates: start: 20230302, end: 20230306
  16. CALCIUM CARBONATE\CHOLECALCIFEROL [Concomitant]
     Active Substance: CALCIUM CARBONATE\CHOLECALCIFEROL
     Dosage: 500 MG/800 IE 1X1
     Route: 048
     Dates: start: 20211025, end: 20230306
  17. ACETAMINOPHEN [Concomitant]
     Active Substance: ACETAMINOPHEN
     Dosage: 500 MG 1VB
     Route: 048
     Dates: start: 20221010, end: 20230306
  18. ALBUTEROL SULFATE\IPRATROPIUM BROMIDE [Concomitant]
     Active Substance: ALBUTEROL SULFATE\IPRATROPIUM BROMIDE
     Dosage: 0,5 MG/2,5 MG PER 2,5 ML 1VB
     Dates: start: 20230303, end: 20230306
  19. ISOPROTERENOL HYDROCHLORIDE [Concomitant]
     Active Substance: ISOPROTERENOL HYDROCHLORIDE
     Dosage: 0.2MG/ML ACCORDING TO PM
     Route: 042
     Dates: start: 20230228, end: 20230306
  20. CLOPIDOGREL ACTAVIS [CLOPIDOGREL BESYLATE] [Concomitant]
     Dosage: 75 MG 1X1
     Route: 048
     Dates: start: 20230301, end: 20230306

REACTIONS (2)
  - Myocardial infarction [Fatal]
  - Atrioventricular block complete [Fatal]

NARRATIVE: CASE EVENT DATE: 20230227
